FAERS Safety Report 4785702-X (Version None)
Quarter: 2005Q4

REPORT INFORMATION
  Report Type: 
  Country: None (occurrence: None)
  Receive Date: 20051003
  Receipt Date: 20050922
  Transmission Date: 20060501
  Serious: Yes (Other)
  Sender: FDA-Public Use
  Company Number: 2005UW14113

PATIENT
  Age: 51 Year
  Sex: Male

DRUGS (2)
  1. ZOMIG-ZMT [Suspect]
     Route: 048
  2. ATASOL [Concomitant]

REACTIONS (3)
  - DIFFICULTY IN WALKING [None]
  - MYALGIA [None]
  - PAIN [None]
